FAERS Safety Report 11723679 (Version 4)
Quarter: 2015Q4

REPORT INFORMATION
  Report Type: Spontaneous
  Country: FR (occurrence: FR)
  Receive Date: 20151111
  Receipt Date: 20151201
  Transmission Date: 20160304
  Serious: Yes (Hospitalization, Other)
  Sender: FDA-Public Use
  Company Number: FR-PFIZER INC-2015384672

PATIENT
  Age: 82 Year
  Sex: Female

DRUGS (14)
  1. SPASFON [Suspect]
     Active Substance: PHLOROGLUCINOL
     Dosage: UNK UNK, DAILY
     Route: 065
     Dates: start: 20151007, end: 20151009
  2. SMECTA [Suspect]
     Active Substance: MONTMORILLONITE
     Dosage: UNK UNK, DAILY
     Route: 065
     Dates: start: 20151003, end: 20151009
  3. PROTHIADEN [Concomitant]
     Active Substance: DOTHIEPIN HYDROCHLORIDE
     Dosage: UNK
  4. RAMIPRIL. [Suspect]
     Active Substance: RAMIPRIL
     Indication: HYPERTENSION
     Dosage: 10 MG, DAILY
     Route: 065
  5. IBUPROFEN. [Suspect]
     Active Substance: IBUPROFEN
     Dosage: 400 MG, DAILY
     Route: 065
     Dates: start: 20151003, end: 20151009
  6. TIORFANOR [Suspect]
     Active Substance: RACECADOTRIL
     Indication: DIARRHOEA
     Dosage: 350 MG, DAILY
     Route: 048
     Dates: start: 20151007, end: 20151009
  7. OGASTORO [Suspect]
     Active Substance: LANSOPRAZOLE
     Dosage: 30 MG, DAILY
     Route: 065
     Dates: start: 20151007, end: 20151009
  8. NORDAZ [Concomitant]
     Active Substance: NORDAZEPAM
     Dosage: UNK
  9. ZOPICLONE [Concomitant]
     Active Substance: ZOPICLONE
     Dosage: UNK
  10. KARDEGIC [Concomitant]
     Active Substance: ASPIRIN LYSINE
     Dosage: UNK
  11. SIMVASTATIN. [Concomitant]
     Active Substance: SIMVASTATIN
     Dosage: UNK
  12. PARACETAMOL [Suspect]
     Active Substance: ACETAMINOPHEN
     Dosage: 3 G, DAILY
     Route: 065
     Dates: start: 20151003, end: 20151009
  13. CELIPROLOL [Concomitant]
     Active Substance: CELIPROLOL
     Dosage: UNK
  14. VOGALENE [Suspect]
     Active Substance: METOPIMAZINE
     Dosage: 22500 MG, DAILY
     Route: 065
     Dates: start: 20151003, end: 20151009

REACTIONS (4)
  - Hypovolaemia [Recovered/Resolved]
  - Dehydration [Recovered/Resolved]
  - Acute kidney injury [Recovering/Resolving]
  - Vomiting [Recovered/Resolved]

NARRATIVE: CASE EVENT DATE: 20151009
